FAERS Safety Report 6546264-X (Version None)
Quarter: 2010Q1

REPORT INFORMATION
  Report Type: 
  Country: None (occurrence: None)
  Receive Date: 20100122
  Receipt Date: 20100119
  Transmission Date: 20100710
  Serious: Yes (Hospitalization)
  Sender: FDA-Public Use
  Company Number: IT-BRISTOL-MYERS SQUIBB COMPANY-14900211

PATIENT
  Age: 80 Year
  Sex: Male

DRUGS (1)
  1. COUMADIN [Suspect]
     Indication: ARTERIAL DISORDER
     Dosage: AS NECESSARY
     Route: 048
     Dates: start: 20081114, end: 20091114

REACTIONS (3)
  - BENIGN PROSTATIC HYPERPLASIA [None]
  - BLOOD GLUCOSE ABNORMAL [None]
  - INTERNATIONAL NORMALISED RATIO INCREASED [None]
